FAERS Safety Report 9235938 (Version 2)
Quarter: 2013Q2

REPORT INFORMATION
  Report Type: Spontaneous
  Country: JP (occurrence: JP)
  Receive Date: 20130417
  Receipt Date: 20130417
  Transmission Date: 20140414
  Serious: Yes (Hospitalization)
  Sender: FDA-Public Use
  Company Number: JP-BAYER-2012-129979

PATIENT
  Age: 42 Year
  Sex: Male
  Weight: 61 kg

DRUGS (13)
  1. CIPROXAN-I.V.300 [Suspect]
     Indication: MENINGITIS
     Dosage: 300 MG, BID
     Route: 041
     Dates: start: 20110603, end: 20110603
  2. TEGRETOL [Suspect]
     Indication: HEADACHE
     Dosage: 200 MG, BID
     Route: 048
     Dates: start: 20110523, end: 20110602
  3. LOXONIN [Concomitant]
     Indication: PYREXIA
     Dosage: UNK
     Route: 048
     Dates: start: 20110518, end: 20110602
  4. LOXONIN [Concomitant]
     Indication: HEADACHE
  5. METHYCOBAL [Concomitant]
     Indication: NEUROPATHY PERIPHERAL
     Dosage: 500 ?G, TID
     Route: 048
     Dates: start: 20110518, end: 20110611
  6. PARIET [Concomitant]
     Indication: GASTRIC ULCER
     Dosage: 10 MG, QD
     Route: 048
     Dates: start: 20110523, end: 20110611
  7. VALTREX [Concomitant]
     Indication: MENINGITIS
     Dosage: 500 MG, TID
     Route: 048
     Dates: start: 20110601, end: 20110602
  8. ACICLOVIR [Concomitant]
     Indication: MENINGITIS
     Dosage: DAILY DOSE 1500 MG
     Route: 041
     Dates: start: 20110524, end: 20110531
  9. MUCOSTA [Concomitant]
     Dosage: UNK
     Route: 048
     Dates: start: 20110518, end: 20110602
  10. CLARITH [Concomitant]
     Indication: NASOPHARYNGITIS
     Route: 048
  11. SEFTAC [Concomitant]
     Indication: NASOPHARYNGITIS
     Route: 048
  12. EMPYNASE [Concomitant]
     Indication: NASOPHARYNGITIS
     Route: 048
  13. METHISTA [Concomitant]
     Indication: NASOPHARYNGITIS
     Route: 048

REACTIONS (3)
  - Liver disorder [Recovered/Resolved]
  - Urticaria [Recovered/Resolved]
  - Platelet count decreased [Recovered/Resolved]
